FAERS Safety Report 17359739 (Version 1)
Quarter: 2020Q1

REPORT INFORMATION
  Report Type: Spontaneous
  Country: US (occurrence: US)
  Receive Date: 20200203
  Receipt Date: 20200203
  Transmission Date: 20200409
  Serious: Yes (Other)
  Sender: FDA-Public Use
  Company Number: US-TEVA-2020-US-1178894

PATIENT
  Age: 70 Year
  Sex: Female

DRUGS (2)
  1. CARBOPLATIN. [Suspect]
     Active Substance: CARBOPLATIN
     Indication: METASTATIC UTERINE CANCER
     Dosage: 3 CYCLES
     Route: 050
     Dates: start: 201905, end: 201907
  2. PACLITAXEL. [Suspect]
     Active Substance: PACLITAXEL
     Indication: METASTATIC UTERINE CANCER
     Dosage: 3 CYCLES
     Route: 050
     Dates: start: 201905, end: 201907

REACTIONS (4)
  - Infusion related reaction [Unknown]
  - Neuropathy peripheral [Unknown]
  - Transaminases increased [Unknown]
  - Drug ineffective [Unknown]

NARRATIVE: CASE EVENT DATE: 2019
